FAERS Safety Report 11239365 (Version 1)
Quarter: 2015Q3

REPORT INFORMATION
  Report Type: Report from Study
  Country: US (occurrence: US)
  Receive Date: 20150706
  Receipt Date: 20150706
  Transmission Date: 20151125
  Serious: Yes (Hospitalization, Other)
  Sender: FDA-Public Use
  Company Number: US-BAXALTA-2015BLT000177

PATIENT

DRUGS (1)
  1. HUMAN NORMAL IMMUNOGLOBULIN; HYALURONIDASE [Suspect]
     Active Substance: HUMAN IMMUNOGLOBULIN G\HYALURONIDASE RECOMBINANT HUMAN
     Indication: PRODUCT USED FOR UNKNOWN INDICATION
     Route: 065

REACTIONS (13)
  - Gastrointestinal viral infection [Unknown]
  - Disturbance in attention [Unknown]
  - Infusion site swelling [Unknown]
  - Infusion site extravasation [Unknown]
  - Bacterial infection [None]
  - Dehydration [Unknown]
  - Diabetes mellitus inadequate control [Unknown]
  - Infusion site discomfort [Unknown]
  - Sinusitis [Unknown]
  - Anaemia vitamin B12 deficiency [Unknown]
  - Memory impairment [Unknown]
  - Pancreatic cyst [Unknown]
  - Gravitational oedema [Unknown]
